FAERS Safety Report 24449193 (Version 2)
Quarter: 2024Q4

REPORT INFORMATION
  Report Type: Spontaneous
  Country: US (occurrence: US)
  Receive Date: 20241017
  Receipt Date: 20241111
  Transmission Date: 20250115
  Serious: Yes (Death, Hospitalization)
  Sender: TEVA
  Company Number: US-TEVA-VS-3253357

PATIENT
  Age: 44 Year
  Sex: Male

DRUGS (5)
  1. PREDNISONE [Suspect]
     Active Substance: PREDNISONE
     Indication: Radiation pneumonitis
     Route: 065
  2. DOCETAXEL [Suspect]
     Active Substance: DOCETAXEL
     Indication: Colon cancer metastatic
     Route: 065
  3. REGORAFENIB [Suspect]
     Active Substance: REGORAFENIB
     Indication: Colon cancer metastatic
     Route: 065
  4. GEMCITABINE HYDROCHLORIDE [Suspect]
     Active Substance: GEMCITABINE HYDROCHLORIDE
     Indication: Colon cancer metastatic
     Route: 065
  5. AMOXICILLIN\CLAVULANATE POTASSIUM [Suspect]
     Active Substance: AMOXICILLIN\CLAVULANATE POTASSIUM
     Indication: Pneumocystis jirovecii pneumonia
     Route: 065

REACTIONS (4)
  - Pulmonary cavitation [Fatal]
  - Respiratory disorder [Fatal]
  - Acute respiratory failure [Fatal]
  - Drug ineffective [Fatal]
